FAERS Safety Report 6198259-6 (Version None)
Quarter: 2009Q2

REPORT INFORMATION
  Report Type: 
  Country: None (occurrence: None)
  Receive Date: 20090521
  Receipt Date: 20090519
  Transmission Date: 20091009
  Serious: No
  Sender: FDA-Public Use
  Company Number: JP-EISAI INC.-E2020-04073-SPO-JP

PATIENT
  Sex: Male
  Weight: 52 kg

DRUGS (8)
  1. ARICEPT [Suspect]
     Indication: DEMENTIA ALZHEIMER'S TYPE
     Route: 048
     Dates: start: 20081229, end: 20090104
  2. ARICEPT [Suspect]
     Route: 048
     Dates: start: 20090105, end: 20090106
  3. ARICEPT [Suspect]
     Route: 048
     Dates: start: 20090107, end: 20090113
  4. HARNAL D [Suspect]
     Route: 048
  5. CASODEX [Concomitant]
     Indication: PROSTATISM
     Route: 048
  6. TOLTERODINE TARTRATE [Concomitant]
     Route: 048
  7. OPAPROSMON [Concomitant]
     Route: 048
  8. SM POWDER [Concomitant]
     Route: 048

REACTIONS (3)
  - BLOOD PRESSURE DECREASED [None]
  - DEPRESSED LEVEL OF CONSCIOUSNESS [None]
  - SUPRAVENTRICULAR EXTRASYSTOLES [None]
